FAERS Safety Report 8539246-X (Version None)
Quarter: 2012Q3

REPORT INFORMATION
  Report Type: 
  Country: None (occurrence: None)
  Receive Date: 20120726
  Receipt Date: 20120718
  Transmission Date: 20120928
  Serious: Yes (Death, Hospitalization)
  Sender: FDA-Public Use
  Company Number: US-INCYTE CORPORATION-2012IN000864

PATIENT
  Sex: Male
  Weight: 57.143 kg

DRUGS (7)
  1. DETROL [Concomitant]
     Dosage: 4 MG, UNK
  2. ULTRAM [Concomitant]
     Dosage: 200 MG, UNK
  3. HYDROXYUREA [Concomitant]
     Dosage: 500 MG, UNK
  4. OMEPRAZOLE [Concomitant]
     Dosage: 20.6 MG, UNK
  5. JAKAFI [Suspect]
     Indication: MYELOFIBROSIS
     Dosage: 20 MG, BID
     Route: 048
     Dates: start: 20120201, end: 20120401
  6. ALLOPURINOL [Concomitant]
     Dosage: 100 MG, UNK
  7. HYDREA [Concomitant]

REACTIONS (2)
  - DEHYDRATION [None]
  - ACUTE MYELOID LEUKAEMIA [None]
